FAERS Safety Report 7825110-8 (Version None)
Quarter: 2011Q4

REPORT INFORMATION
  Report Type: 
  Country: None (occurrence: None)
  Receive Date: 20111019
  Receipt Date: 20101210
  Transmission Date: 20120403
  Serious: No
  Sender: FDA-Public Use
  Company Number: US-BRISTOL-MYERS SQUIBB COMPANY-15362536

PATIENT
  Age: 62 Year
  Sex: Female

DRUGS (2)
  1. AVALIDE [Suspect]
     Dosage: 1DF:150/12.5MG;3 YEARS AGO
     Route: 048
     Dates: start: 20091124
  2. MAXALT [Concomitant]

REACTIONS (1)
  - THROMBOCYTOPENIA [None]
